FAERS Safety Report 16174742 (Version 2)
Quarter: 2019Q2

REPORT INFORMATION
  Report Type: Spontaneous
  Country: US (occurrence: US)
  Receive Date: 20190409
  Receipt Date: 20190416
  Transmission Date: 20190711
  Serious: No
  Sender: FDA-Public Use
  Company Number: US-ASTRAZENECA-2019SE53213

PATIENT
  Sex: Female
  Weight: 87 kg

DRUGS (16)
  1. NEXIUM 24HR [Suspect]
     Active Substance: ESOMEPRAZOLE MAGNESIUM
     Indication: GASTROOESOPHAGEAL REFLUX DISEASE
     Dosage: CLEAR MINI
     Route: 048
  2. NEXIUM 24HR [Suspect]
     Active Substance: ESOMEPRAZOLE MAGNESIUM
     Indication: DYSPEPSIA
     Dosage: REGULAR
     Route: 048
     Dates: start: 2018
  3. MAALOX ANTACID [Concomitant]
     Active Substance: ALUMINUM HYDROXIDE\DIMETHICONE\MAGNESIUM HYDROXIDE
  4. NEXIUM [Suspect]
     Active Substance: ESOMEPRAZOLE MAGNESIUM
     Indication: DYSPEPSIA
     Route: 048
     Dates: start: 2001
  5. NEXIUM 24HR [Suspect]
     Active Substance: ESOMEPRAZOLE MAGNESIUM
     Indication: GASTROOESOPHAGEAL REFLUX DISEASE
     Dosage: REGULAR
     Route: 048
     Dates: start: 2018
  6. IBUPROFEN. [Suspect]
     Active Substance: IBUPROFEN
     Dosage: 2.0DF AS REQUIRED
     Route: 065
  7. NEXIUM 24HR [Suspect]
     Active Substance: ESOMEPRAZOLE MAGNESIUM
     Indication: GASTROOESOPHAGEAL REFLUX DISEASE
     Dosage: REGULAR
     Route: 048
     Dates: start: 2018
  8. NEXIUM [Suspect]
     Active Substance: ESOMEPRAZOLE MAGNESIUM
     Indication: GASTROOESOPHAGEAL REFLUX DISEASE
     Route: 048
     Dates: start: 2001
  9. SUDAFED 24 HOUR [Concomitant]
     Active Substance: PSEUDOEPHEDRINE HYDROCHLORIDE
  10. ACIPHEX [Concomitant]
     Active Substance: RABEPRAZOLE SODIUM
  11. NEXIUM 24HR [Suspect]
     Active Substance: ESOMEPRAZOLE MAGNESIUM
     Indication: GASTROOESOPHAGEAL REFLUX DISEASE
     Dosage: CLEAR MINI
     Route: 048
  12. TUMS [Suspect]
     Active Substance: CALCIUM CARBONATE
     Dosage: 100.0MG UNKNOWN
     Route: 065
     Dates: start: 201903
  13. NEXIUM [Suspect]
     Active Substance: ESOMEPRAZOLE MAGNESIUM
     Indication: GASTROOESOPHAGEAL REFLUX DISEASE
     Route: 048
     Dates: start: 2001
  14. NEXIUM 24HR [Suspect]
     Active Substance: ESOMEPRAZOLE MAGNESIUM
     Indication: DYSPEPSIA
     Dosage: CLEAR MINI
     Route: 048
  15. PROTONIX [Concomitant]
     Active Substance: PANTOPRAZOLE SODIUM
  16. PREVACID [Concomitant]
     Active Substance: LANSOPRAZOLE

REACTIONS (11)
  - Dyspepsia [Not Recovered/Not Resolved]
  - Sinus headache [Not Recovered/Not Resolved]
  - Gastrointestinal disorder [Unknown]
  - Rebound acid hypersecretion [Unknown]
  - Chest pain [Unknown]
  - Therapeutic product effect delayed [Not Recovered/Not Resolved]
  - Weight increased [Not Recovered/Not Resolved]
  - Therapeutic product effect decreased [Not Recovered/Not Resolved]
  - Gastrooesophageal reflux disease [Not Recovered/Not Resolved]
  - Dysgeusia [Unknown]
  - Abdominal discomfort [Unknown]
